FAERS Safety Report 5165829-3 (Version None)
Quarter: 2006Q4

REPORT INFORMATION
  Report Type: 
  Country: None (occurrence: None)
  Receive Date: 20061128
  Receipt Date: 20061115
  Transmission Date: 20070319
  Serious: Yes (Other)
  Sender: FDA-Public Use
  Company Number: 2006142783

PATIENT
  Sex: Female

DRUGS (1)
  1. BEXTRA [Suspect]
     Indication: PAIN
     Dosage: ORAL
     Route: 048

REACTIONS (1)
  - CEREBROVASCULAR ACCIDENT [None]
